FAERS Safety Report 5164477-9 (Version None)
Quarter: 2006Q4

REPORT INFORMATION
  Report Type: 
  Country: None (occurrence: None)
  Receive Date: 20061127
  Receipt Date: 20061127
  Transmission Date: 20070319
  Serious: Yes (Hospitalization)
  Sender: FDA-Public Use
  Company Number: None

PATIENT
  Age: 93 Year
  Sex: Female
  Weight: 70.3075 kg

DRUGS (1)
  1. CLINDAMYCIN HCL [Suspect]
     Indication: LOCALISED INFECTION
     Dosage: 300 MG 4X DAY FOR 10 DAYS PO
     Route: 048
     Dates: start: 20061026, end: 20061027

REACTIONS (5)
  - ASTHENIA [None]
  - BLOOD POTASSIUM DECREASED [None]
  - COLITIS [None]
  - RENAL FAILURE [None]
  - WHITE BLOOD CELL COUNT INCREASED [None]
